FAERS Safety Report 4824831-9 (Version None)
Quarter: 2005Q4

REPORT INFORMATION
  Report Type: 
  Country: None (occurrence: None)
  Receive Date: 20051012
  Receipt Date: 20050630
  Transmission Date: 20060501
  Serious: No
  Sender: FDA-Public Use
  Company Number: 2005S1000143

PATIENT
  Age: 58 Year
  Sex: 0

DRUGS (3)
  1. CUBICIN [Suspect]
     Indication: OSTEOMYELITIS
     Dosage: 6 MG/KG; Q24H; IV
     Route: 042
     Dates: start: 20050101
  2. VANCOMYCIN [Concomitant]
  3. CEFTAZIDIME [Concomitant]

REACTIONS (4)
  - ASTHENIA [None]
  - FATIGUE [None]
  - HYPOKALAEMIA [None]
  - NAUSEA [None]
